FAERS Safety Report 7423293-5 (Version None)
Quarter: 2011Q2

REPORT INFORMATION
  Report Type: 
  Country: None (occurrence: None)
  Receive Date: 20110419
  Receipt Date: 20101108
  Transmission Date: 20111010
  Serious: Yes (Other)
  Sender: FDA-Public Use
  Company Number: US-BAYER-201038049NA

PATIENT
  Age: 20 Year
  Sex: Female
  Weight: 93 kg

DRUGS (11)
  1. MIDRIN [Concomitant]
  2. YASMIN [Suspect]
     Indication: CONTRACEPTION
     Dosage: UNK
     Dates: start: 20050101, end: 20090101
  3. MULTI-VITAMINS [Concomitant]
  4. LONOX [Concomitant]
     Indication: DIARRHOEA
     Dosage: UNK UNK, QID
  5. ORLISTAT [Concomitant]
  6. OCELLA [Suspect]
     Indication: CONTRACEPTION
     Dosage: UNK
     Route: 048
     Dates: start: 20090101
  7. OCELLA [Suspect]
  8. PROTONIX [Concomitant]
     Indication: NAUSEA
     Dosage: 40 MG, UNK
  9. YAZ [Suspect]
     Indication: CONTRACEPTION
     Dosage: UNK
     Dates: start: 20050101, end: 20090101
  10. PHENERGAN [Concomitant]
     Dosage: 25 MG, PRN
  11. ELAVIL [Concomitant]

REACTIONS (3)
  - GALLBLADDER DISORDER [None]
  - GALLBLADDER CHOLESTEROLOSIS [None]
  - CHOLECYSTITIS CHRONIC [None]
